FAERS Safety Report 4282090-2 (Version None)
Quarter: 2004Q1

REPORT INFORMATION
  Report Type: 
  Country: None (occurrence: None)
  Receive Date: 20040130
  Receipt Date: 20030414
  Transmission Date: 20041129
  Serious: No
  Sender: FDA-Public Use
  Company Number: US-BRISTOL-MYERS SQUIBB COMPANY-12239562

PATIENT
  Age: 55 Year
  Sex: Female
  Weight: 44 kg

DRUGS (3)
  1. TRAZODONE HCL [Suspect]
     Dosage: AT NIGHT DAILY
     Route: 048
     Dates: start: 20030101
  2. CLONAZEPAM [Concomitant]
  3. OXYCODONE HCL [Concomitant]

REACTIONS (1)
  - GASTROINTESTINAL DISORDER [None]
